FAERS Safety Report 10673299 (Version 1)
Quarter: 2014Q4

REPORT INFORMATION
  Report Type: Spontaneous
  Country: FI (occurrence: FI)
  Receive Date: 20141224
  Receipt Date: 20141224
  Transmission Date: 20150529
  Serious: Yes (Disabling)
  Sender: FDA-Public Use
  Company Number: FI-RANBAXY-2014RR-90482

PATIENT
  Age: 44 Year
  Sex: Male

DRUGS (3)
  1. ATORVASTATIN ORION [Suspect]
     Active Substance: ATORVASTATIN CALCIUM
     Indication: HYPERCHOLESTEROLAEMIA
     Dosage: 20 MG, QD
     Route: 048
     Dates: end: 20141021
  2. AMLODIPIN [Concomitant]
     Active Substance: AMLODIPINE BESYLATE
     Indication: HYPERTENSION
     Dosage: 5 MG, DAILY
     Route: 048
  3. LOSATRIX COMP [Concomitant]
     Indication: HYPERTENSION
     Dosage: 50/12.5 MG ONCE DAILY
     Route: 048

REACTIONS (3)
  - Visual acuity reduced [Recovered/Resolved with Sequelae]
  - Visual field defect [Recovered/Resolved with Sequelae]
  - Fundoscopy abnormal [Recovered/Resolved with Sequelae]

NARRATIVE: CASE EVENT DATE: 20140801
